FAERS Safety Report 4479659-9 (Version None)
Quarter: 2004Q4

REPORT INFORMATION
  Report Type: 
  Country: None (occurrence: None)
  Receive Date: 20041018
  Receipt Date: 20040930
  Transmission Date: 20050328
  Serious: Yes (Life-Threatening, Hospitalization, Disabling)
  Sender: FDA-Public Use
  Company Number: 2003AP00165

PATIENT
  Age: 70 Year
  Sex: Female

DRUGS (8)
  1. PULMICORT [Suspect]
     Indication: ASTHMA
     Dosage: 400 UG TID IH
     Route: 055
  2. PULMICORT [Suspect]
     Indication: ASTHMA
     Dosage: 800 UG BID IH
     Route: 055
     Dates: end: 20020701
  3. SPORANOX [Suspect]
     Indication: CELLULITIS
     Dosage: 200 MG BID
     Dates: start: 20020301, end: 20020501
  4. SPORANOX [Suspect]
     Indication: INFECTION
     Dosage: 200 MG BID
     Dates: start: 20020301, end: 20020501
  5. DILTIAZEM [Concomitant]
  6. PREDNISOLONE [Concomitant]
  7. BENDROFLUAZIDE [Concomitant]
  8. TERBUTALINE [Concomitant]

REACTIONS (15)
  - ADRENOCORTICAL INSUFFICIENCY ACUTE [None]
  - ASTHMA [None]
  - CELLULITIS [None]
  - CONDITION AGGRAVATED [None]
  - CUSHING'S SYNDROME [None]
  - DIARRHOEA [None]
  - DRUG INTERACTION [None]
  - FUNGAL INFECTION [None]
  - JOINT SWELLING [None]
  - LETHARGY [None]
  - LIVER DISORDER [None]
  - OSTEOPOROSIS [None]
  - SCEDOSPORIUM INFECTION [None]
  - SYSTOLIC HYPERTENSION [None]
  - VASCULAR STENOSIS [None]
